FAERS Safety Report 5880035-2 (Version None)
Quarter: 2008Q3

REPORT INFORMATION
  Report Type: 
  Country: None (occurrence: None)
  Receive Date: 20080911
  Receipt Date: 20080911
  Transmission Date: 20090109
  Serious: Yes (Hospitalization)
  Sender: FDA-Public Use
  Company Number: None

PATIENT
  Sex: Male
  Weight: 84.369 kg

DRUGS (1)
  1. DIGOXIN [Suspect]
     Indication: ARRHYTHMIA
     Dosage: 0.125MG 1X EVERY AM
     Dates: start: 20070425, end: 20080425

REACTIONS (2)
  - BLOOD PRESSURE DECREASED [None]
  - PHARMACEUTICAL PRODUCT COMPLAINT [None]
